FAERS Safety Report 8828897 (Version 1)
Quarter: 2012Q4

REPORT INFORMATION
  Report Type: 
  Country: US (occurrence: US)
  Receive Date: 20121008
  Receipt Date: 20121008
  Transmission Date: 20130627
  Serious: Yes (Hospitalization)
  Sender: FDA-Public Use
  Company Number: US-ROCHE-1142495

PATIENT
  Age: 67 Year
  Sex: Male

DRUGS (3)
  1. ZELBORAF [Suspect]
     Indication: MALIGNANT MELANOMA
     Route: 048
     Dates: start: 20120328
  2. ACETYL L-CARETENE (UNK INGREDIENTS) [Concomitant]
     Route: 048
  3. TYLENOL WITH CODEINE [Concomitant]
     Indication: PAIN

REACTIONS (2)
  - Pancreatitis necrotising [Unknown]
  - Abdominal pain [Unknown]
